FAERS Safety Report 16103064 (Version 1)
Quarter: 2019Q1

REPORT INFORMATION
  Report Type: Spontaneous
  Country: FR (occurrence: FR)
  Receive Date: 20190322
  Receipt Date: 20190322
  Transmission Date: 20190418
  Serious: Yes (Hospitalization, Other)
  Sender: FDA-Public Use
  Company Number: FR-AUROBINDO-AUR-APL-2019-014593

PATIENT

DRUGS (12)
  1. NUROFEN [Suspect]
     Active Substance: IBUPROFEN
     Indication: CHILLS
     Dosage: UNK
     Route: 048
     Dates: start: 20130313
  2. PARACETAMOL [Suspect]
     Active Substance: ACETAMINOPHEN
     Indication: PYREXIA
     Dosage: UNK
     Route: 048
     Dates: start: 20130313
  3. PARACETAMOL [Suspect]
     Active Substance: ACETAMINOPHEN
     Indication: MYALGIA
     Dosage: UNK
     Route: 048
     Dates: start: 20130313
  4. NUROFEN [Suspect]
     Active Substance: IBUPROFEN
     Indication: MYALGIA
     Dosage: UNK
     Route: 048
     Dates: start: 20130313
  5. NUROFEN [Suspect]
     Active Substance: IBUPROFEN
     Indication: PYREXIA
     Dosage: UNK
     Route: 048
     Dates: start: 20130313
  6. PARACETAMOL [Suspect]
     Active Substance: ACETAMINOPHEN
     Indication: HYPERHIDROSIS
     Dosage: UNK
     Route: 048
     Dates: start: 20130313
  7. PARACETAMOL [Suspect]
     Active Substance: ACETAMINOPHEN
     Indication: PYREXIA
     Dosage: UNK
     Route: 048
     Dates: start: 20130313
  8. PARACETAMOL [Suspect]
     Active Substance: ACETAMINOPHEN
     Indication: CHILLS
     Dosage: UNK
     Route: 048
     Dates: start: 20130313
  9. NUROFEN [Suspect]
     Active Substance: IBUPROFEN
     Indication: INFLUENZA LIKE ILLNESS
     Dosage: UNK
     Route: 048
     Dates: start: 20130313, end: 20130314
  10. NUROFEN [Suspect]
     Active Substance: IBUPROFEN
     Indication: FATIGUE
     Dosage: UNK
     Route: 048
     Dates: start: 20130313
  11. PARACETAMOL [Suspect]
     Active Substance: ACETAMINOPHEN
     Indication: FATIGUE
     Dosage: UNK
     Route: 048
     Dates: start: 20130313
  12. NUROFEN [Suspect]
     Active Substance: IBUPROFEN
     Indication: HYPERHIDROSIS
     Dosage: UNK
     Route: 048
     Dates: start: 20130313

REACTIONS (4)
  - Arthralgia [Recovered/Resolved]
  - Vascular purpura [Recovered/Resolved]
  - Oedema peripheral [Recovered/Resolved]
  - Rash erythematous [Recovered/Resolved]

NARRATIVE: CASE EVENT DATE: 20130314
